FAERS Safety Report 11842258 (Version 1)
Quarter: 2015Q4

REPORT INFORMATION
  Report Type: Spontaneous
  Country: US (occurrence: US)
  Receive Date: 20151216
  Receipt Date: 20151216
  Transmission Date: 20160305
  Serious: No
  Sender: FDA-Public Use
  Company Number: US-RB-074800-15

PATIENT
  Age: 10 Year
  Sex: Male

DRUGS (1)
  1. DELSYM [Suspect]
     Active Substance: DEXTROMETHORPHAN
     Indication: NASOPHARYNGITIS
     Dosage: 5ML. PATIENT WAS GIVEN FIRST DOSE AT 3:00AM AND NEXT DOSE AT 12:00PM,FREQUENCY UNK
     Route: 065
     Dates: start: 20150315

REACTIONS (3)
  - Lethargy [None]
  - Condition aggravated [Not Recovered/Not Resolved]
  - Inappropriate schedule of drug administration [Not Recovered/Not Resolved]

NARRATIVE: CASE EVENT DATE: 20150315
